FAERS Safety Report 12774716 (Version 2)
Quarter: 2017Q1

REPORT INFORMATION
  Report Type: Report from Study
  Country: US (occurrence: US)
  Receive Date: 20160923
  Receipt Date: 20170208
  Transmission Date: 20170428
  Serious: No
  Sender: FDA-Public Use
  Company Number: PHEH2016US024012

PATIENT
  Age: 53 Year
  Sex: Female

DRUGS (2)
  1. COSENTYX [Suspect]
     Active Substance: SECUKINUMAB
     Dosage: 300 MG, QMO
     Route: 058
     Dates: start: 20160726
  2. COSENTYX [Suspect]
     Active Substance: SECUKINUMAB
     Indication: PSORIASIS
     Dosage: 300 MG, QMO
     Route: 065
     Dates: start: 20160608

REACTIONS (3)
  - Skin exfoliation [Unknown]
  - Psoriasis [Unknown]
  - Drug ineffective [Unknown]

NARRATIVE: CASE EVENT DATE: 20160608
